FAERS Safety Report 8624248-5 (Version None)
Quarter: 2012Q3

REPORT INFORMATION
  Report Type: 
  Country: None (occurrence: None)
  Receive Date: 20120824
  Receipt Date: 20120824
  Transmission Date: 20120928
  Serious: Yes (Other)
  Sender: FDA-Public Use
  Company Number: None

PATIENT
  Age: 13 Month
  Sex: Female
  Weight: 9.0719 kg

DRUGS (2)
  1. PREVACID [Suspect]
     Indication: EATING DISORDER
     Dosage: 1/2 OF TABLET -7.5 TWICE DAILY PO
     Route: 048
     Dates: start: 20120605, end: 20120619
  2. LANSOPRAZOLE [Suspect]
     Indication: GASTROOESOPHAGEAL REFLUX DISEASE
     Dosage: 2.5 NK -7.5 MG- TWICE DAILY PO
     Route: 048
     Dates: start: 20120523, end: 20120605

REACTIONS (2)
  - WEIGHT INCREASED [None]
  - PRODUCT SUBSTITUTION ISSUE [None]
